FAERS Safety Report 8175036-8 (Version None)
Quarter: 2012Q1

REPORT INFORMATION
  Report Type: 
  Country: None (occurrence: None)
  Receive Date: 20120229
  Receipt Date: 20120221
  Transmission Date: 20120608
  Serious: Yes (Other)
  Sender: FDA-Public Use
  Company Number: PHHY2012US014956

PATIENT
  Age: 67 Year
  Sex: Female

DRUGS (19)
  1. CEFTRIAXONE [Suspect]
     Indication: URINARY TRACT INFECTION
     Dosage: 1 G, UNK
     Route: 030
  2. OMEPRAZOLE [Concomitant]
     Dosage: 20 MG, QD
  3. CEFUROXIME AXETIL [Concomitant]
     Dosage: 500 MG, BID FOR SEVEN DAYS
  4. PHENAZOPYRIDINE HCL TAB [Concomitant]
     Dosage: 200 MG, TID
  5. ALBUTEROL [Concomitant]
     Dosage: ORAL INHALATION VIA A METERED-DOSE INHALER
     Route: 048
  6. METOCLOPRAMIDE [Concomitant]
     Dosage: 10 MG, QD PRN
  7. SOTALOL HCL [Concomitant]
     Dosage: 80 MG, QD
  8. GEMFIBROZIL [Concomitant]
     Dosage: 600 MG, BID
  9. WARFARIN SODIUM [Interacting]
     Dosage: 52.5-54.5 MG WEEKLY
  10. CEFTRIAXONE [Interacting]
     Dosage: 1 G, UNK
     Route: 030
  11. PIOGLITAZONE [Concomitant]
     Dosage: 15 MG, QD
  12. METFORMIN HCL [Concomitant]
     Dosage: 500 MG, TID
  13. POTASSIUM CHLORIDE [Concomitant]
     Dosage: 8 MEQ, QD
  14. WARFARIN SODIUM [Interacting]
     Dosage: 7.5 MG/DAY WEEKLY
  15. FUROSEMIDE [Concomitant]
     Dosage: 40 MG, QD
  16. SIMVASTATIN [Concomitant]
     Dosage: 20 MG, QD
  17. CITALOPRAM HYDROBROMIDE [Concomitant]
     Dosage: 40 MG, QD
  18. ALBUTEROL SULFATE AND IPRATROPIUM BROMIDE [Concomitant]
     Dosage: TWO INHALATIONS EVERY SIX HOURS
  19. LEVOTHYROXINE SODIUM [Concomitant]
     Dosage: 100 MCG DAILY

REACTIONS (2)
  - DRUG INTERACTION [None]
  - INTERNATIONAL NORMALISED RATIO INCREASED [None]
